FAERS Safety Report 9541133 (Version 2)
Quarter: 2014Q4

REPORT INFORMATION
  Report Type: Report from Study
  Country: US (occurrence: US)
  Receive Date: 20130923
  Receipt Date: 20141020
  Transmission Date: 20150529
  Serious: Yes (Hospitalization)
  Sender: FDA-Public Use
  Company Number: US-BIOGENIDEC-2013BI090472

PATIENT
  Age: 44 Year
  Sex: Male

DRUGS (2)
  1. AVONEX [Suspect]
     Active Substance: INTERFERON BETA-1A
     Indication: MULTIPLE SCLEROSIS
     Route: 030
     Dates: start: 2003
  2. AVONEX [Suspect]
     Active Substance: INTERFERON BETA-1A
     Indication: MULTIPLE SCLEROSIS
     Route: 030
     Dates: start: 19980601, end: 2003

REACTIONS (12)
  - Lower limb fracture [Recovered/Resolved]
  - Feeling abnormal [Unknown]
  - General symptom [Recovered/Resolved]
  - Rib fracture [Recovered/Resolved]
  - Hand fracture [Recovered/Resolved]
  - Hypoaesthesia [Unknown]
  - Upper limb fracture [Recovered/Resolved]
  - Fall [Recovered/Resolved]
  - Hip fracture [Recovered/Resolved]
  - Pelvic fracture [Recovered/Resolved]
  - Wrist fracture [Recovered/Resolved]
  - Memory impairment [Unknown]

NARRATIVE: CASE EVENT DATE: 2010
